FAERS Safety Report 7016882-3 (Version None)
Quarter: 2010Q3

REPORT INFORMATION
  Report Type: 
  Country: None (occurrence: None)
  Receive Date: 20100927
  Receipt Date: 20100914
  Transmission Date: 20110219
  Serious: Yes (Life-Threatening, Hospitalization)
  Sender: FDA-Public Use
  Company Number: DE-GENENTECH-301187

PATIENT
  Sex: Female
  Weight: 79 kg

DRUGS (5)
  1. RITUXIMAB [Suspect]
     Indication: RHEUMATOID ARTHRITIS
     Dosage: 1000 MG, UNK
     Route: 042
     Dates: start: 20100202
  2. INSULIN [Concomitant]
     Indication: DIABETES MELLITUS
     Dosage: UNK
  3. PREDNISOLON [Concomitant]
     Indication: RHEUMATOID ARTHRITIS
     Dosage: UNK
     Route: 048
     Dates: start: 20100201
  4. DIMETINDENE [Concomitant]
     Indication: PRODUCT USED FOR UNKNOWN INDICATION
     Dosage: 5 MG, UNK
     Dates: start: 20100308
  5. PREDNISOLONE SODIUM SUCCINATE INJ [Concomitant]
     Indication: PREMEDICATION
     Dosage: 100 MG, UNK
     Dates: start: 20100308

REACTIONS (4)
  - ANAPHYLACTIC REACTION [None]
  - ASTHMA [None]
  - DYSPNOEA [None]
  - HYPOTENSION [None]
